FAERS Safety Report 5677533-3 (Version None)
Quarter: 2008Q1

REPORT INFORMATION
  Report Type: 
  Country: None (occurrence: None)
  Receive Date: 20080324
  Receipt Date: 20080314
  Transmission Date: 20080703
  Serious: Yes (Hospitalization, Other)
  Sender: FDA-Public Use
  Company Number: US-ELI_LILLY_AND_COMPANY-US200801004576

PATIENT
  Sex: Female

DRUGS (5)
  1. FORTEO [Suspect]
     Indication: OSTEOPOROSIS
     Dosage: UNK, DAILY (1/D)
     Route: 058
     Dates: start: 20071201, end: 20080101
  2. FORTEO [Suspect]
     Dosage: UNK, DAILY (1/D)
     Route: 058
     Dates: start: 20080101, end: 20080101
  3. FORTEO [Suspect]
     Dosage: UNK, DAILY (1/D)
     Route: 065
     Dates: start: 20080101
  4. TIAZAC [Concomitant]
     Dosage: 180 UNK, 2/D
  5. DEMADEX [Concomitant]
     Dosage: 20 MG, DAILY (1/D)

REACTIONS (8)
  - ASTHENIA [None]
  - CORONARY ARTERY DISEASE [None]
  - CREATININE URINE INCREASED [None]
  - FALL [None]
  - ILL-DEFINED DISORDER [None]
  - MALAISE [None]
  - MYOCARDIAL INFARCTION [None]
  - NAUSEA [None]
